FAERS Safety Report 9517486 (Version 2)
Quarter: 2013Q3

REPORT INFORMATION
  Report Type: Report from Study
  Country: US (occurrence: US)
  Receive Date: 20130911
  Receipt Date: 20130930
  Transmission Date: 20140515
  Serious: Yes (Other)
  Sender: FDA-Public Use
  Company Number: US-ROCHE-1272406

PATIENT
  Age: 34 Year
  Sex: Female

DRUGS (6)
  1. ACTEMRA [Suspect]
     Indication: RHEUMATOID ARTHRITIS
     Route: 042
     Dates: start: 20130906, end: 20130906
  2. ACTEMRA [Suspect]
     Route: 042
     Dates: start: 20130809
  3. AMITRIPTYLINE [Concomitant]
     Route: 065
  4. ARAVA [Concomitant]
     Route: 065
  5. ADENOSINE [Concomitant]
  6. BENADRYL (UNITED STATES) [Concomitant]

REACTIONS (5)
  - Epistaxis [Recovered/Resolved]
  - Anaphylactic reaction [Recovered/Resolved]
  - Sinus tachycardia [Recovered/Resolved]
  - Vomiting [Unknown]
  - Headache [Unknown]
